FAERS Safety Report 6249763-3 (Version None)
Quarter: 2009Q2

REPORT INFORMATION
  Report Type: 
  Country: None (occurrence: None)
  Receive Date: 20090629
  Receipt Date: 20090618
  Transmission Date: 20091009
  Serious: Yes (Other)
  Sender: FDA-Public Use
  Company Number: GB-BAXTER-2009BH008387

PATIENT

DRUGS (1)
  1. SUPRANE [Suspect]
     Indication: ANAESTHESIA
     Route: 055

REACTIONS (2)
  - DEVICE INTERACTION [None]
  - DRUG INEFFECTIVE [None]
